FAERS Safety Report 9682734 (Version 1)
Quarter: 2013Q4

REPORT INFORMATION
  Report Type: Spontaneous
  Country: FR (occurrence: FR)
  Receive Date: 20131112
  Receipt Date: 20131112
  Transmission Date: 20140711
  Serious: Yes (Hospitalization)
  Sender: FDA-Public Use
  Company Number: FR-JNJFOC-20131101746

PATIENT
  Age: 66 Year
  Sex: Female

DRUGS (9)
  1. HALDOL DECANOAS [Suspect]
     Indication: BIPOLAR I DISORDER
     Route: 030
  2. STAGID [Concomitant]
     Route: 065
  3. KARDEGIC [Concomitant]
     Route: 065
  4. TAHOR [Concomitant]
     Route: 065
  5. ESOMEPRAZOLE [Concomitant]
     Route: 065
  6. PARKINANE [Concomitant]
     Route: 065
  7. MIANSERIN [Concomitant]
     Route: 065
  8. RIVOTRIL [Concomitant]
     Route: 065
  9. TEGRETOL [Concomitant]
     Route: 065

REACTIONS (1)
  - Angle closure glaucoma [Recovered/Resolved]
